FAERS Safety Report 7257996-2 (Version None)
Quarter: 2011Q1

REPORT INFORMATION
  Report Type: 
  Country: None (occurrence: None)
  Receive Date: 20110129
  Receipt Date: 20100615
  Transmission Date: 20110831
  Serious: No
  Sender: FDA-Public Use
  Company Number: US-ABBOTT-10P-163-0651537-00

PATIENT
  Age: 57 Year
  Sex: Female

DRUGS (13)
  1. BYETTA [Concomitant]
     Indication: DIABETES MELLITUS
  2. PROAIR HFA [Concomitant]
     Indication: ASTHMA
  3. SYNTHROID [Concomitant]
     Indication: THYROID DISORDER
     Dosage: DAILY
  4. FOLIC ACID [Concomitant]
     Indication: PRODUCT USED FOR UNKNOWN INDICATION
  5. DIOVAN [Concomitant]
     Indication: BLOOD PRESSURE
     Dosage: DAILY
  6. WOMEN'S ONE A DAY MULTIVITAMIN [Concomitant]
     Indication: PRODUCT USED FOR UNKNOWN INDICATION
     Dosage: DAILY
  7. METHOTREXATE [Concomitant]
     Indication: RHEUMATOID ARTHRITIS
     Dosage: 9 PILLS WEEKLY
  8. HUMIRA [Suspect]
     Indication: RHEUMATOID ARTHRITIS
  9. GLYBURIDE [Concomitant]
     Indication: DIABETES MELLITUS
     Dosage: DAILY
  10. CALTRATE [Concomitant]
     Indication: OSTEOPOROSIS PROPHYLAXIS
     Dosage: DAILY
  11. FISH OIL [Concomitant]
     Indication: PRODUCT USED FOR UNKNOWN INDICATION
  12. CARVEDILOL [Concomitant]
     Indication: BLOOD PRESSURE
     Dosage: DAILY
  13. FUROSEMIDE [Concomitant]
     Indication: PRODUCT USED FOR UNKNOWN INDICATION
     Dosage: DAILY

REACTIONS (3)
  - PAIN IN EXTREMITY [None]
  - TRIGGER FINGER [None]
  - INJECTION SITE PAIN [None]
